FAERS Safety Report 7244424-6 (Version None)
Quarter: 2011Q1

REPORT INFORMATION
  Report Type: 
  Country: None (occurrence: None)
  Receive Date: 20110125
  Receipt Date: 20110114
  Transmission Date: 20110831
  Serious: Yes (Other)
  Sender: FDA-Public Use
  Company Number: PHHY2011JP01467

PATIENT
  Age: 12 Year
  Sex: Female

DRUGS (3)
  1. METHYLPREDNISOLONE [Concomitant]
     Indication: NEPHROTIC SYNDROME
  2. CLINDAMYCIN [Concomitant]
  3. CYCLOSPORINE [Suspect]
     Indication: NEPHROTIC SYNDROME
     Route: 048

REACTIONS (7)
  - CHORIORETINAL DISORDER [None]
  - VITREOUS DISORDER [None]
  - CHORIORETINAL ATROPHY [None]
  - VISUAL ACUITY REDUCED [None]
  - CATARACT SUBCAPSULAR [None]
  - CHORIORETINITIS [None]
  - EYE INFECTION BACTERIAL [None]
